FAERS Safety Report 23757495 (Version 1)
Quarter: 2024Q2

REPORT INFORMATION
  Report Type: Spontaneous
  Country: CN (occurrence: CN)
  Receive Date: 20240418
  Receipt Date: 20240418
  Transmission Date: 20240716
  Serious: Yes (Death, Other)
  Sender: FDA-Public Use
  Company Number: CN-009507513-2404CHN007614

PATIENT
  Age: 62 Year
  Sex: Male
  Weight: 68 kg

DRUGS (10)
  1. PEMBROLIZUMAB [Suspect]
     Active Substance: PEMBROLIZUMAB
     Indication: Metastatic gastric cancer
     Dosage: 200 MG, EVERY 2 WEEKS (ALSO REPORTED AS BIW)
     Route: 042
     Dates: start: 20210403, end: 20210403
  2. PEMBROLIZUMAB [Suspect]
     Active Substance: PEMBROLIZUMAB
     Dosage: 200 MG, EVERY 2 WEEKS (ALSO REPORTED AS BIW)
     Route: 042
     Dates: start: 20210430, end: 20210430
  3. PEMBROLIZUMAB [Suspect]
     Active Substance: PEMBROLIZUMAB
     Dosage: 200 MG, EVERY 2 WEEKS (ALSO REPORTED AS BIW)
     Route: 042
     Dates: start: 20210529, end: 20210529
  4. PEMBROLIZUMAB [Suspect]
     Active Substance: PEMBROLIZUMAB
     Dosage: 200 MG, EVERY 2 WEEKS (ALSO REPORTED AS BIW)
     Route: 042
     Dates: start: 20210626, end: 20210626
  5. PEMBROLIZUMAB [Suspect]
     Active Substance: PEMBROLIZUMAB
     Dosage: 200 MG, EVERY 2 WEEKS (ALSO REPORTED AS BIW)
     Route: 042
     Dates: start: 20210802, end: 20210802
  6. PACLITAXEL [Suspect]
     Active Substance: PACLITAXEL
     Indication: Metastatic gastric cancer
     Dosage: 200 MG, D1 + D8 (REPEATED EVERY 2 WEEKS)
     Route: 042
     Dates: start: 20210403, end: 20210403
  7. PACLITAXEL [Suspect]
     Active Substance: PACLITAXEL
     Dosage: 200 MG, D1 + D8 (REPEATED EVERY 2 WEEKS)
     Route: 042
     Dates: start: 20210430, end: 20210430
  8. PACLITAXEL [Suspect]
     Active Substance: PACLITAXEL
     Dosage: 200 MG, D1 + D8 (REPEATED EVERY 2 WEEKS)
     Route: 042
     Dates: start: 20210529, end: 20210529
  9. PACLITAXEL [Suspect]
     Active Substance: PACLITAXEL
     Dosage: 200 MG, D1 + D8 (REPEATED EVERY 2 WEEKS)
     Route: 042
     Dates: start: 20210626, end: 20210626
  10. PACLITAXEL [Suspect]
     Active Substance: PACLITAXEL
     Dosage: 200 MG, D1 + D8 (REPEATED EVERY 2 WEEKS)
     Route: 042
     Dates: start: 20210802, end: 20210802

REACTIONS (3)
  - Malignant neoplasm progression [Fatal]
  - Autoimmune lung disease [Unknown]
  - Product use in unapproved indication [Unknown]

NARRATIVE: CASE EVENT DATE: 20210403
